FAERS Safety Report 7299123-1 (Version None)
Quarter: 2011Q1

REPORT INFORMATION
  Report Type: 
  Country: None (occurrence: None)
  Receive Date: 20110217
  Receipt Date: 20110208
  Transmission Date: 20110831
  Serious: Yes (Hospitalization)
  Sender: FDA-Public Use
  Company Number: US-ASTRAZENECA-2011SE07866

PATIENT
  Sex: Female

DRUGS (1)
  1. SYMBICORT [Suspect]
     Indication: LUNG DISORDER
     Dosage: 160/4.5 UG DAILY
     Route: 055

REACTIONS (4)
  - BRONCHITIS CHRONIC [None]
  - HAEMOTHORAX [None]
  - PNEUMONIA [None]
  - COLLAPSE OF LUNG [None]
